FAERS Safety Report 6997389-6 (Version None)
Quarter: 2010Q3

REPORT INFORMATION
  Report Type: 
  Country: None (occurrence: None)
  Receive Date: 20100918
  Receipt Date: 20091013
  Transmission Date: 20110219
  Serious: Yes (Hospitalization)
  Sender: FDA-Public Use
  Company Number: US-WYE-H11566909

PATIENT
  Sex: Female

DRUGS (1)
  1. TORISEL [Suspect]
     Indication: RENAL CELL CARCINOMA
     Dosage: NOT PROVIDED
     Route: 042
     Dates: start: 20090825

REACTIONS (1)
  - PNEUMONIA [None]
